FAERS Safety Report 5858100-5 (Version None)
Quarter: 2008Q3

REPORT INFORMATION
  Report Type: 
  Country: None (occurrence: None)
  Receive Date: 20080818
  Receipt Date: 20080512
  Transmission Date: 20090109
  Serious: No
  Sender: FDA-Public Use
  Company Number: TPA2008A00690

PATIENT
  Age: 84 Year
  Sex: Male
  Weight: 70.3075 kg

DRUGS (6)
  1. ROZEREM [Suspect]
     Indication: SLEEP DISORDER
     Dosage: 8 MG, QHS, PER ORAL
     Route: 048
     Dates: start: 20070901, end: 20070901
  2. ROZEREM [Suspect]
     Indication: SLEEP DISORDER
     Dosage: 8 MG, QHS, PER ORAL
     Route: 048
     Dates: start: 20080505
  3. RANITIDINE [Concomitant]
  4. METOPROLOL TARTRATE [Concomitant]
  5. UNKNOWN MEDICATION (CHOLESTEROL- AND TRIGLYCERIDE REDUCERS) [Concomitant]
  6. XANAX [Concomitant]

REACTIONS (1)
  - INITIAL INSOMNIA [None]
